FAERS Safety Report 19555992 (Version 5)
Quarter: 2021Q4

REPORT INFORMATION
  Report Type: Spontaneous
  Country: FR (occurrence: FR)
  Receive Date: 20210716
  Receipt Date: 20211203
  Transmission Date: 20220303
  Serious: No
  Sender: FDA-Public Use
  Company Number: FR-JNJFOC-20200215435

PATIENT
  Age: 81 Year
  Sex: Female

DRUGS (14)
  1. FENTANYL [Suspect]
     Active Substance: FENTANYL
     Indication: Neuropathy peripheral
     Dosage: STRENGTH: 12.00 MCG/HR
     Route: 062
  2. FENTANYL [Suspect]
     Active Substance: FENTANYL
  3. FENTANYL [Suspect]
     Active Substance: FENTANYL
  4. FENTANYL [Suspect]
     Active Substance: FENTANYL
  5. FENTANYL [Suspect]
     Active Substance: FENTANYL
  6. FENTANYL [Suspect]
     Active Substance: FENTANYL
     Indication: Neuropathy peripheral
     Dosage: STRENGTH: 12.00 MCG/HR
     Route: 062
  7. FENTANYL [Suspect]
     Active Substance: FENTANYL
  8. FENTANYL [Suspect]
     Active Substance: FENTANYL
  9. FENTANYL [Suspect]
     Active Substance: FENTANYL
  10. FENTANYL [Suspect]
     Active Substance: FENTANYL
  11. TAREC [Concomitant]
     Indication: Product used for unknown indication
     Dosage: 1 MORNING 30  YEARS
     Route: 065
     Dates: start: 1987
  12. PRAMIPEXOLE [Concomitant]
     Active Substance: PRAMIPEXOLE
     Indication: Product used for unknown indication
     Dosage: 1 YEAR AND HALF, 1 TAB IN EVENING
     Route: 065
  13. RIVOTRIL [Concomitant]
     Active Substance: CLONAZEPAM
     Indication: Product used for unknown indication
     Dosage: 10 DROPS
     Route: 065
  14. DOLIPRANE [Concomitant]
     Active Substance: ACETAMINOPHEN
     Indication: Product used for unknown indication
     Dosage: 1 YEAR AND HALF
     Route: 065

REACTIONS (6)
  - Product administration error [Unknown]
  - Off label use [Unknown]
  - Wrong technique in product usage process [Unknown]
  - Poor quality sleep [Unknown]
  - Product dose omission issue [Unknown]
  - Product packaging issue [Unknown]
